FAERS Safety Report 9743347 (Version 1)
Quarter: 2013Q4

REPORT INFORMATION
  Report Type: Spontaneous
  Country: US (occurrence: US)
  Receive Date: 20131210
  Receipt Date: 20131210
  Transmission Date: 20140711
  Serious: Yes (Other)
  Sender: FDA-Public Use
  Company Number: US-BAYER-2013-147404

PATIENT
  Sex: Male
  Weight: 88 kg

DRUGS (2)
  1. BAYER ASPIRIN REGIMEN ADULT LOW STRENGTH [Suspect]
     Dosage: 1 DF, QD
     Route: 048
     Dates: start: 2008
  2. ATORVASTATIN [Concomitant]
     Dosage: UNK

REACTIONS (2)
  - Transient ischaemic attack [Recovered/Resolved]
  - Intentional drug misuse [None]
